FAERS Safety Report 5921898-1 (Version None)
Quarter: 2008Q4

REPORT INFORMATION
  Report Type: 
  Country: None (occurrence: None)
  Receive Date: 20081015
  Receipt Date: 20080929
  Transmission Date: 20090506
  Serious: Yes (Other)
  Sender: FDA-Public Use
  Company Number: 231431J07USA

PATIENT
  Age: 61 Year
  Sex: Female
  Weight: 89 kg

DRUGS (5)
  1. REBIF [Suspect]
     Indication: MULTIPLE SCLEROSIS
     Dosage: 44 MCG, 3 IN 1 WEEKS,  SUBCUTANEOUS
     Route: 058
     Dates: start: 20030311
  2. COZAAR [Concomitant]
  3. PROVIGIL [Concomitant]
  4. COREG [Concomitant]
  5. INSULIN (INSULIN /00030501/) [Concomitant]

REACTIONS (4)
  - EYE HAEMORRHAGE [None]
  - FATIGUE [None]
  - HEADACHE [None]
  - VISION BLURRED [None]
